FAERS Safety Report 7168103-9 (Version None)
Quarter: 2010Q4

REPORT INFORMATION
  Report Type: 
  Country: None (occurrence: None)
  Receive Date: 20101216
  Receipt Date: 20101213
  Transmission Date: 20110411
  Serious: Yes (Hospitalization, Other)
  Sender: FDA-Public Use
  Company Number: US-PFIZER INC-2008031593

PATIENT
  Sex: Female
  Weight: 52 kg

DRUGS (22)
  1. CHANTIX [Suspect]
     Indication: SMOKING CESSATION THERAPY
     Dosage: 1 MG, 2X/DAY
     Route: 048
     Dates: start: 20080223
  2. CHANTIX [Suspect]
     Dosage: 0.5 MG, 1X/DAY
     Route: 048
     Dates: start: 20090101, end: 20090101
  3. CHANTIX [Suspect]
     Dosage: UNK
     Route: 048
     Dates: start: 20100628
  4. CHANTIX [Suspect]
     Dosage: 0.5 MG, 2X/DAY
     Route: 048
  5. CHANTIX [Suspect]
     Dosage: 0.5 MG, 1X/DAY
     Route: 048
  6. CHANTIX [Suspect]
     Dosage: 0.5 MG, 2X/DAY
  7. CHANTIX [Suspect]
     Dosage: 1 MG, 2X/DAY
  8. TYLENOL (CAPLET) [Concomitant]
  9. FLUOXETINE [Concomitant]
     Dosage: 60 MG, 1X/DAY
  10. FLUOXETINE [Concomitant]
     Dosage: 60 MG, DAILY
  11. VITAMIN D [Concomitant]
     Dosage: 600 MG, UNK
  12. CALCIUM [Concomitant]
     Dosage: UNK
  13. TENIDAP SODIUM [Concomitant]
     Dosage: UNK
  14. ALPRAZOLAM [Concomitant]
     Dosage: 0.5 MG, 2X/DAY
  15. ALPRAZOLAM [Concomitant]
     Dosage: 0.5 MG, 2X/DAY
  16. CLINDAMYCIN [Concomitant]
     Dosage: 150 MG, AS NEEDED
  17. DARIFENACIN [Concomitant]
     Indication: BLADDER DISORDER
     Dosage: 150 MG, 1X/DAY
  18. THEOPHYLLINE [Concomitant]
     Dosage: 200 MG, 2X/DAY
  19. ZOLPIDEM [Concomitant]
     Dosage: UNK, 1X/DAY AT BED TIME
  20. LORATADINE [Concomitant]
     Dosage: 10 MG, 1X/DAY
  21. ALBUTEROL [Concomitant]
     Dosage: 1.25 MG, 3X/DAY
  22. ALBUTEROL [Concomitant]
     Dosage: 6.70 MG, UNK

REACTIONS (6)
  - DEPRESSION [None]
  - DYSPNOEA [None]
  - EPISTAXIS [None]
  - INFECTION [None]
  - MUTISM [None]
  - PARANOIA [None]
